FAERS Safety Report 6911848-3 (Version None)
Quarter: 2010Q3

REPORT INFORMATION
  Report Type: 
  Country: None (occurrence: None)
  Receive Date: 20100806
  Receipt Date: 20070815
  Transmission Date: 20110219
  Serious: No
  Sender: FDA-Public Use
  Company Number: US-PFIZER INC-2007064062

PATIENT
  Age: 76 Year
  Sex: Female

DRUGS (4)
  1. DETROL LA [Suspect]
     Indication: URINARY INCONTINENCE
     Dates: start: 20050101
  2. DETROL LA [Suspect]
     Dates: start: 20060101
  3. DITROPAN [Suspect]
     Indication: URINARY INCONTINENCE
     Dates: start: 20050101
  4. DITROPAN [Suspect]
     Dates: start: 20060101

REACTIONS (2)
  - DRUG INEFFECTIVE [None]
  - DRY MOUTH [None]
